FAERS Safety Report 18356505 (Version 3)
Quarter: 2020Q4

REPORT INFORMATION
  Report Type: Spontaneous
  Country: HU (occurrence: HU)
  Receive Date: 20201007
  Receipt Date: 20201103
  Transmission Date: 20210114
  Serious: Yes (Other)
  Sender: FDA-Public Use
  Company Number: US-ALLERGAN-2038014US

PATIENT
  Sex: Male

DRUGS (1)
  1. CEFTAROLINE FOSAMIL - BP [Suspect]
     Active Substance: CEFTAROLINE FOSAMIL
     Indication: PNEUMONIA
     Dosage: 600 MG, BID
     Route: 042

REACTIONS (8)
  - Encephalitis [Unknown]
  - Bacteraemia [Unknown]
  - Arterial rupture [Unknown]
  - Abscess [Unknown]
  - Endocarditis [Unknown]
  - Septic embolus [Unknown]
  - Cardiac murmur [Unknown]
  - Myocarditis [Unknown]
